FAERS Safety Report 4318465-2 (Version None)
Quarter: 2004Q1

REPORT INFORMATION
  Report Type: 
  Country: None (occurrence: None)
  Receive Date: 20040317
  Receipt Date: 20040317
  Transmission Date: 20041129
  Serious: Yes (Other)
  Sender: FDA-Public Use
  Company Number: None

PATIENT
  Age: 70 Year
  Sex: Female

DRUGS (1)
  1. FERRLECIT [Suspect]
     Indication: IRON DEFICIENCY ANAEMIA
     Dosage: 500 MG IV ONE DOSE
     Route: 042
     Dates: start: 20040304

REACTIONS (3)
  - ASTHENIA [None]
  - EPISTAXIS [None]
  - FATIGUE [None]
